FAERS Safety Report 16827871 (Version 2)
Quarter: 2019Q4

REPORT INFORMATION
  Report Type: Spontaneous
  Country: US (occurrence: US)
  Receive Date: 20190919
  Receipt Date: 20191104
  Transmission Date: 20200122
  Serious: No
  Sender: FDA-Public Use
  Company Number: US-PFIZER INC-2019263564

PATIENT
  Age: 85 Year
  Sex: Female
  Weight: 66.22 kg

DRUGS (13)
  1. LASIX [Concomitant]
     Active Substance: FUROSEMIDE
     Dosage: 60 MG, UNK 1, 1/2 TAB PER DAY  (1 MORNING - 1/2 MID-AFTERNOON)
  2. TYLENOL [Suspect]
     Active Substance: ACETAMINOPHEN
     Dosage: UNK, AS NEEDED
  3. LYRICA [Suspect]
     Active Substance: PREGABALIN
     Indication: NEUROPATHY PERIPHERAL
     Dosage: 75 MG, 2X/DAY
     Route: 048
     Dates: start: 20190914
  4. LYRICA [Suspect]
     Active Substance: PREGABALIN
     Indication: NERVE INJURY
     Dosage: 75 MG, 2X/DAY (2 CAPSULES PER DAY, 1 MORNING AND 1 BEDTIME)
     Dates: start: 1998
  5. DOK [Concomitant]
     Active Substance: DOCUSATE SODIUM
     Dosage: 200 MG, AS NEEDED (2CAPSULES 100MG)
  6. COMBIVENT RESPIMAT [Concomitant]
     Active Substance: ALBUTEROL SULFATE\IPRATROPIUM BROMIDE
     Dosage: UNK, AS NEEDED (4 TIMES DAILY)
  7. CALCIUM 600+VITAMIN D3 400 [Concomitant]
     Dosage: UNK UNK, DAILY [CALCIUM 600 MG PLUS VITAMIN D400 UI]
  8. LOSARTAN POTASSIUM. [Concomitant]
     Active Substance: LOSARTAN POTASSIUM
     Dosage: 25 MG, 1X/DAY (1 MORNING- SAME TIME EACH DAY)
  9. LYRICA [Suspect]
     Active Substance: PREGABALIN
     Indication: HYPOAESTHESIA
     Dosage: 75 MG, 1X/DAY
     Route: 048
  10. CARVEDILOL. [Concomitant]
     Active Substance: CARVEDILOL
     Dosage: 6.25 MG, 2X/DAY [1 MORNING WITH MEAL + 1 WITH SUPPER]
  11. OMEPRAZOLE. [Concomitant]
     Active Substance: OMEPRAZOLE
     Dosage: 20 MG, 1X/DAY [TAKE EACH MORNING ON EMPTY STOMACH]
  12. POTASSIUM CHLORIDE. [Concomitant]
     Active Substance: POTASSIUM CHLORIDE
     Dosage: 10 MG, DAILY (1/2 TABLET DAILY) (AFTER SUPPER)
  13. WARFIN [Concomitant]
     Active Substance: WARFARIN
     Dosage: 1.5 MG, UNK [1/2 TABLET ON MON. WED. FRI/TAKE ALL OTHER DAYS]

REACTIONS (3)
  - Gastric disorder [Unknown]
  - Product prescribing error [Unknown]
  - Product dose omission [Unknown]

NARRATIVE: CASE EVENT DATE: 20190909
